FAERS Safety Report 12527387 (Version 2)
Quarter: 2016Q3

REPORT INFORMATION
  Report Type: Spontaneous
  Country: US (occurrence: US)
  Receive Date: 20160705
  Receipt Date: 20160729
  Transmission Date: 20161109
  Serious: Yes (Other)
  Sender: FDA-Public Use
  Company Number: US-PFIZER INC-2016312203

PATIENT
  Age: 56 Year
  Sex: Male

DRUGS (1)
  1. DIAZEPAM. [Suspect]
     Active Substance: DIAZEPAM
     Indication: SLEEP DISORDER
     Dosage: 10 MG, ONCE DAILY (1 PILL AT NIGHT)
     Route: 048
     Dates: start: 20160301

REACTIONS (4)
  - Fall [Unknown]
  - Seizure [Unknown]
  - Myoclonus [Unknown]
  - Treatment noncompliance [Unknown]
